FAERS Safety Report 22242620 (Version 1)
Quarter: 2023Q2

REPORT INFORMATION
  Report Type: Spontaneous
  Country: NL (occurrence: NL)
  Receive Date: 20230424
  Receipt Date: 20230424
  Transmission Date: 20230721
  Serious: Yes (Other)
  Sender: FDA-Public Use
  Company Number: NL-HALOCARBON LIFE SCIENCES, LLC-20230400011

PATIENT
  Age: 21 Year
  Sex: Male
  Weight: 90 kg

DRUGS (6)
  1. SEVOFLURANE [Suspect]
     Active Substance: SEVOFLURANE
  2. MIDAZOLAM [Concomitant]
     Active Substance: MIDAZOLAM
     Dosage: 2 MILLIGRAM PER MILLILITRE
  3. FENTANYL [Concomitant]
     Active Substance: FENTANYL
     Dosage: 350 MICROGRAM
  4. PROPOFOL [Concomitant]
     Active Substance: PROPOFOL
     Dosage: 250 MILLIGRAM
  5. CEFAZOLIN [Concomitant]
     Active Substance: CEFAZOLIN
     Dosage: 2 GRAM
  6. ONDANSETRON [Concomitant]
     Active Substance: ONDANSETRON
     Dosage: 4 MILLIGRAM

REACTIONS (1)
  - Pulmonary alveolar haemorrhage [Recovered/Resolved]
